FAERS Safety Report 5766795-X (Version None)
Quarter: 2008Q2

REPORT INFORMATION
  Report Type: 
  Country: None (occurrence: None)
  Receive Date: 20080609
  Receipt Date: 20080603
  Transmission Date: 20081010
  Serious: Yes (Hospitalization)
  Sender: FDA-Public Use
  Company Number: 2008SP009832

PATIENT
  Age: 58 Year
  Sex: Male
  Weight: 44 kg

DRUGS (8)
  1. TEMODAL [Suspect]
     Indication: GASTROINTESTINAL CARCINOMA
     Dosage: 150 MG/M2;PO
     Route: 048
     Dates: start: 20080214, end: 20080416
  2. TEMODAL [Suspect]
     Indication: RESPIRATORY TRACT NEOPLASM
     Dosage: 150 MG/M2;PO
     Route: 048
     Dates: start: 20080214, end: 20080416
  3. METOCLOPRAMIDE [Concomitant]
  4. SUCRALFATE [Concomitant]
  5. TEMAZEPAM [Concomitant]
  6. CLINUTREN [Concomitant]
  7. LANSOPRAZOLE [Concomitant]
  8. WARFARIN SODIUM [Concomitant]

REACTIONS (9)
  - ANOREXIA [None]
  - ASTHENIA [None]
  - DEHYDRATION [None]
  - DEPRESSED MOOD [None]
  - DISEASE PROGRESSION [None]
  - FEELING ABNORMAL [None]
  - HAEMOGLOBIN DECREASED [None]
  - NEUTROPENIA [None]
  - WEIGHT DECREASED [None]
